FAERS Safety Report 15737040 (Version 1)
Quarter: 2018Q4

REPORT INFORMATION
  Report Type: Spontaneous
  Country: AU (occurrence: AU)
  Receive Date: 20181218
  Receipt Date: 20181218
  Transmission Date: 20190205
  Serious: Yes (Hospitalization)
  Sender: FDA-Public Use
  Company Number: AU-MYLANLABS-2018M1094119

PATIENT
  Age: 4 Year
  Sex: Male

DRUGS (1)
  1. TEMAZEPAM. [Suspect]
     Active Substance: TEMAZEPAM
     Indication: PRODUCT USED FOR UNKNOWN INDICATION
     Dosage: UNK

REACTIONS (4)
  - Victim of child abuse [Unknown]
  - Depressed level of consciousness [Unknown]
  - Prescription drug used without a prescription [Unknown]
  - Product administered to patient of inappropriate age [Unknown]
